FAERS Safety Report 6522702-3 (Version None)
Quarter: 2009Q4

REPORT INFORMATION
  Report Type: 
  Country: None (occurrence: None)
  Receive Date: 20091222
  Receipt Date: 20091207
  Transmission Date: 20100525
  Serious: Yes (Hospitalization)
  Sender: FDA-Public Use
  Company Number: 455285

PATIENT
  Age: 71 Year
  Sex: Male
  Weight: 65 kg

DRUGS (6)
  1. METHOTREXATE [Suspect]
     Indication: RHEUMATOID ARTHRITIS
     Dosage: 17.5 MG, 1 WEEK,
     Dates: start: 20071101, end: 20080110
  2. CLINDAMYCIN [Concomitant]
  3. FOLIC ACID [Concomitant]
  4. OMEPRAZOLE [Concomitant]
  5. PRIMAQUINE [Concomitant]
  6. RAMIPRIL [Concomitant]

REACTIONS (6)
  - BONE MARROW FAILURE [None]
  - DRUG TOXICITY [None]
  - HYPERKALAEMIA [None]
  - HYPONATRAEMIA [None]
  - PNEUMOCYSTIS JIROVECI PNEUMONIA [None]
  - VOMITING [None]
